FAERS Safety Report 14990870 (Version 1)
Quarter: 2018Q2

REPORT INFORMATION
  Report Type: Spontaneous
  Country: BR (occurrence: BR)
  Receive Date: 20180608
  Receipt Date: 20180608
  Transmission Date: 20180711
  Serious: Yes (Hospitalization, Other)
  Sender: FDA-Public Use
  Company Number: BR-PFIZER INC-2018228173

PATIENT
  Age: 51 Year
  Sex: Female

DRUGS (1)
  1. CELEBRA [Suspect]
     Active Substance: CELECOXIB
     Dosage: UNK

REACTIONS (11)
  - Haemorrhage [Unknown]
  - Intracranial aneurysm [Unknown]
  - Photosensitivity reaction [Unknown]
  - Pain [Unknown]
  - Pain [Unknown]
  - Osteoporosis [Unknown]
  - Bone disorder [Unknown]
  - Headache [Unknown]
  - Fibromyalgia [Unknown]
  - Thyroid disorder [Unknown]
  - Retching [Unknown]

NARRATIVE: CASE EVENT DATE: 2001
